FAERS Safety Report 24457617 (Version 1)
Quarter: 2024Q4

REPORT INFORMATION
  Report Type: Spontaneous
  Country: CA (occurrence: CA)
  Receive Date: 20241018
  Receipt Date: 20241018
  Transmission Date: 20250115
  Serious: Yes (Other)
  Sender: NOVO NORDISK
  Company Number: CA-NOVOPROD-1299329

PATIENT
  Sex: Female

DRUGS (1)
  1. VAGIFEM [Suspect]
     Active Substance: ESTRADIOL
     Indication: Atrophic vulvovaginitis
     Dosage: UNK

REACTIONS (12)
  - Fungal infection [Unknown]
  - Cataract [Unknown]
  - Vaginal infection [Unknown]
  - Eyelid disorder [Unknown]
  - Skin exfoliation [Unknown]
  - Alopecia [Unknown]
  - Alopecia [Unknown]
  - Alopecia [Unknown]
  - Hypertension [Unknown]
  - Headache [Unknown]
  - Pruritus [Unknown]
  - Pruritus [Unknown]
